FAERS Safety Report 12388017 (Version 1)
Quarter: 2016Q2

REPORT INFORMATION
  Report Type: Spontaneous
  Country: DE (occurrence: DE)
  Receive Date: 20160520
  Receipt Date: 20160520
  Transmission Date: 20160815
  Serious: Yes (Other)
  Sender: FDA-Public Use
  Company Number: DE-DRREDDYS-GER/GER/16/0079737

PATIENT
  Age: 34 Year
  Sex: Female
  Weight: 76 kg

DRUGS (7)
  1. AMOXICILLIN. [Concomitant]
     Active Substance: AMOXICILLIN
     Indication: CYSTITIS
     Route: 048
     Dates: start: 20141229, end: 20150102
  2. CITALOPRAM [Suspect]
     Active Substance: CITALOPRAM HYDROBROMIDE
     Indication: DEPRESSION
     Route: 048
     Dates: start: 20150509, end: 20150512
  3. UTROGEST [Concomitant]
     Active Substance: PROGESTERONE
     Indication: CERVICAL INCOMPETENCE
     Dates: start: 20150516, end: 20150516
  4. CLONT [Concomitant]
     Indication: GARDNERELLA TEST POSITIVE
     Route: 048
     Dates: start: 20150509, end: 20150516
  5. MAGNESIUM [Concomitant]
     Active Substance: MAGNESIUM
     Indication: CERVICAL INCOMPETENCE
     Route: 048
     Dates: start: 20150516, end: 20150516
  6. CELESTAN [Concomitant]
     Active Substance: BETAMETHASONE
     Indication: MATERNAL THERAPY TO ENHANCE FOETAL LUNG MATURITY
     Route: 030
     Dates: start: 20150509, end: 20150510
  7. FOLIO FORTE [Concomitant]
     Active Substance: FOLIC ACID\VITAMINS
     Indication: PROPHYLAXIS OF NEURAL TUBE DEFECT
     Route: 048

REACTIONS (2)
  - Exposure during pregnancy [Recovered/Resolved]
  - Foetal hypokinesia [Recovered/Resolved]
